FAERS Safety Report 4750698-3 (Version None)
Quarter: 2005Q3

REPORT INFORMATION
  Report Type: 
  Country: None (occurrence: None)
  Receive Date: 20050823
  Receipt Date: 20050810
  Transmission Date: 20060218
  Serious: Yes (Other)
  Sender: FDA-Public Use
  Company Number: 200517247GDDC

PATIENT
  Age: 66 Year
  Sex: Male

DRUGS (4)
  1. KETEK [Suspect]
     Indication: PHARYNGITIS
     Route: 048
     Dates: start: 20050809, end: 20050809
  2. NORVASC [Concomitant]
     Indication: HYPERTENSION
     Dosage: DOSE: UNK
  3. ATACAND HCT [Concomitant]
     Indication: HYPERTENSION
  4. ZOCOR [Concomitant]
     Indication: BLOOD CHOLESTEROL INCREASED

REACTIONS (6)
  - BLOOD PRESSURE INCREASED [None]
  - CHILLS [None]
  - DIZZINESS [None]
  - SWOLLEN TONGUE [None]
  - TACHYCARDIA [None]
  - TREMOR [None]
